FAERS Safety Report 18300876 (Version 1)
Quarter: 2020Q3

REPORT INFORMATION
  Report Type: Report from Study
  Country: CA (occurrence: CA)
  Receive Date: 20200923
  Receipt Date: 20200923
  Transmission Date: 20201103
  Serious: Yes (Hospitalization)
  Sender: FDA-Public Use
  Company Number: CA-ACCORD-202031

PATIENT
  Age: 64 Year
  Sex: Female

DRUGS (3)
  1. VERZENIO [Interacting]
     Active Substance: ABEMACICLIB
     Indication: BREAST CANCER METASTATIC
  2. ROSUVASTATIN. [Suspect]
     Active Substance: ROSUVASTATIN
     Indication: PRODUCT USED FOR UNKNOWN INDICATION
     Route: 065
  3. VERZENIO [Interacting]
     Active Substance: ABEMACICLIB
     Indication: BREAST CANCER METASTATIC

REACTIONS (6)
  - Blood phosphorus abnormal [Not Recovered/Not Resolved]
  - Blood test abnormal [Not Recovered/Not Resolved]
  - Alanine aminotransferase increased [Not Recovered/Not Resolved]
  - Blood creatinine decreased [Not Recovered/Not Resolved]
  - Drug interaction [Unknown]
  - Blood creatine phosphokinase increased [Not Recovered/Not Resolved]
